FAERS Safety Report 5598153-5 (Version None)
Quarter: 2007Q4

REPORT INFORMATION
  Report Type: 
  Country: None (occurrence: None)
  Receive Date: 20071226
  Receipt Date: 20070907
  Transmission Date: 20080405
  Serious: No
  Sender: FDA-Public Use
  Company Number: 2007PV033419

PATIENT
  Age: 56 Year
  Sex: Female
  Weight: 109.3169 kg

DRUGS (8)
  1. SYMLIN [Suspect]
     Indication: TYPE 2 DIABETES MELLITUS
     Dosage: SC
     Route: 058
     Dates: start: 20070601
  2. SYMLIN [Suspect]
     Indication: WEIGHT CONTROL
     Dosage: SC
     Route: 058
     Dates: start: 20070601
  3. LANTUS [Suspect]
     Dates: start: 20070601
  4. HUMALOG [Suspect]
     Dates: start: 20070601
  5. BYETTA [Concomitant]
  6. METFORMIN HCL [Concomitant]
  7. PRANDIN [Concomitant]
  8. GLIPIZIDE [Concomitant]

REACTIONS (1)
  - WEIGHT INCREASED [None]
